APPROVED DRUG PRODUCT: HYDROMORPHONE HYDROCHLORIDE
Active Ingredient: HYDROMORPHONE HYDROCHLORIDE
Strength: 16MG
Dosage Form/Route: TABLET, EXTENDED RELEASE;ORAL
Application: A202144 | Product #003
Applicant: ACTAVIS LABORATORIES FL INC
Approved: May 12, 2014 | RLD: No | RS: No | Type: DISCN